FAERS Safety Report 17492612 (Version 5)
Quarter: 2020Q3

REPORT INFORMATION
  Report Type: Spontaneous
  Country: US (occurrence: US)
  Receive Date: 20200303
  Receipt Date: 20200818
  Transmission Date: 20201102
  Serious: Yes (Life-Threatening, Hospitalization, Other)
  Sender: FDA-Public Use
  Company Number: NVSC2020US057912

PATIENT
  Age: 41 Year
  Sex: Female
  Weight: 83 kg

DRUGS (8)
  1. FOLIC ACID. [Concomitant]
     Active Substance: FOLIC ACID
     Indication: PRODUCT USED FOR UNKNOWN INDICATION
     Dosage: UNK
     Route: 048
  2. VITAMIN D [Concomitant]
     Active Substance: VITAMIN D NOS
     Indication: PRODUCT USED FOR UNKNOWN INDICATION
     Dosage: UNK
     Route: 048
  3. BENADRYL [Concomitant]
     Active Substance: DIPHENHYDRAMINE HYDROCHLORIDE
     Indication: PRODUCT USED FOR UNKNOWN INDICATION
     Dosage: UNK
     Route: 065
  4. TYLENOL [Concomitant]
     Active Substance: ACETAMINOPHEN
     Indication: PRODUCT USED FOR UNKNOWN INDICATION
     Dosage: 2 DF, UNKNOWN
     Route: 065
  5. HYDROXYUREA. [Concomitant]
     Active Substance: HYDROXYUREA
     Indication: PRODUCT USED FOR UNKNOWN INDICATION
     Dosage: UNK
     Route: 065
  6. SOLU?MEDROL [Concomitant]
     Active Substance: METHYLPREDNISOLONE SODIUM SUCCINATE
     Indication: PRODUCT USED FOR UNKNOWN INDICATION
     Dosage: 10 MG, UNKNOWN
     Route: 042
  7. ADAKVEO [Suspect]
     Active Substance: CRIZANLIZUMAB-TMCA
     Indication: SICKLE CELL DISEASE
     Dosage: 5 MG/KG
     Route: 042
     Dates: start: 20200221, end: 20200221
  8. SOLU?MEDROL [Concomitant]
     Active Substance: METHYLPREDNISOLONE SODIUM SUCCINATE
     Dosage: 20 MG, UNKNOWN
     Route: 042

REACTIONS (21)
  - Hypoxia [Unknown]
  - Back pain [Recovered/Resolved]
  - Vascular injury [Unknown]
  - Mental status changes [Recovering/Resolving]
  - Blood lactate dehydrogenase increased [Unknown]
  - White blood cell count decreased [Unknown]
  - Troponin increased [Unknown]
  - Sickle cell anaemia with crisis [Recovered/Resolved]
  - Haemoglobin decreased [Unknown]
  - Fat embolism syndrome [Unknown]
  - Hypertension [Recovering/Resolving]
  - Pain [Recovered/Resolved]
  - Haemolysis [Recovered/Resolved]
  - Blood bilirubin increased [Unknown]
  - Multiple organ dysfunction syndrome [Unknown]
  - Acute chest syndrome [Recovering/Resolving]
  - Reticulocyte count abnormal [Unknown]
  - Oedema [Recovered/Resolved]
  - Incorrect product administration duration [Unknown]
  - Thrombocytopenia [Unknown]
  - Pain in extremity [Unknown]

NARRATIVE: CASE EVENT DATE: 20200221
